FAERS Safety Report 5806773-5 (Version None)
Quarter: 2008Q3

REPORT INFORMATION
  Report Type: 
  Country: None (occurrence: None)
  Receive Date: 20080709
  Receipt Date: 20080709
  Transmission Date: 20090109
  Serious: Yes (Other)
  Sender: FDA-Public Use
  Company Number: None

PATIENT
  Sex: Female
  Weight: 67.1324 kg

DRUGS (6)
  1. BONIVA [Suspect]
     Indication: BONE DENSITY DECREASED
     Dosage: ONE TABLET MONTHLY PO, ONE DOSE USED
     Route: 048
     Dates: start: 20080525, end: 20080625
  2. GABAPENTIN [Concomitant]
  3. CRESTOR [Concomitant]
  4. TRAMADOL HCL [Concomitant]
  5. NEXIUM [Concomitant]
  6. LUNESTA [Concomitant]

REACTIONS (8)
  - ABDOMINAL PAIN UPPER [None]
  - ARTHRALGIA [None]
  - BONE PAIN [None]
  - INFLUENZA LIKE ILLNESS [None]
  - OESOPHAGEAL PAIN [None]
  - PAIN [None]
  - PAIN IN EXTREMITY [None]
  - SLEEP DISORDER [None]
